FAERS Safety Report 10687489 (Version 1)
Quarter: 2015Q1

REPORT INFORMATION
  Report Type: Spontaneous
  Country: IT (occurrence: IT)
  Receive Date: 20150102
  Receipt Date: 20150102
  Transmission Date: 20150720
  Serious: Yes (Other)
  Sender: FDA-Public Use
  Company Number: IT-SA-2014SA178281

PATIENT
  Age: 76 Year
  Sex: Female

DRUGS (1)
  1. KARVEZIDE [Suspect]
     Active Substance: HYDROCHLOROTHIAZIDE\IRBESARTAN
     Route: 048
     Dates: start: 20111201, end: 20141113

REACTIONS (3)
  - Electrocardiogram repolarisation abnormality [Recovering/Resolving]
  - Chest pain [Recovering/Resolving]
  - Hypokalaemia [Recovering/Resolving]

NARRATIVE: CASE EVENT DATE: 20141113
